FAERS Safety Report 8475208-9 (Version None)
Quarter: 2012Q2

REPORT INFORMATION
  Report Type: 
  Country: None (occurrence: None)
  Receive Date: 20120628
  Receipt Date: 20120619
  Transmission Date: 20120825
  Serious: Yes (Hospitalization, Other)
  Sender: FDA-Public Use
  Company Number: US-JNJFOC-20120409442

PATIENT
  Sex: Female

DRUGS (9)
  1. REMICADE [Suspect]
     Route: 042
     Dates: start: 20111222
  2. REMICADE [Suspect]
     Route: 042
     Dates: start: 20120315
  3. AZATHIOPRINE [Concomitant]
     Route: 065
  4. ENTOCORT EC [Concomitant]
     Route: 065
  5. AZATHIOPRINE [Concomitant]
     Indication: CROHN'S DISEASE
     Route: 065
  6. PENTASA [Concomitant]
     Route: 065
  7. REMICADE [Suspect]
     Indication: CROHN'S DISEASE
     Route: 042
     Dates: end: 20120101
  8. PREDNISONE TAB [Concomitant]
     Route: 065
  9. REMICADE [Suspect]
     Route: 042
     Dates: start: 20120105

REACTIONS (3)
  - HYPOTHYROIDISM [None]
  - DEHYDRATION [None]
  - RENAL FAILURE [None]
